FAERS Safety Report 4809747-6 (Version None)
Quarter: 2005Q4

REPORT INFORMATION
  Report Type: 
  Country: None (occurrence: None)
  Receive Date: 20051024
  Receipt Date: 20051024
  Transmission Date: 20060501
  Serious: Yes (Life-Threatening, Hospitalization)
  Sender: FDA-Public Use
  Company Number: None

PATIENT
  Sex: Female
  Weight: 61.3263 kg

DRUGS (1)
  1. ACTIMMUNE [Suspect]
     Indication: IDIOPATHIC PULMONARY FIBROSIS
     Dosage: SQ WEIGHT BASED 2 PER WEEK SQ
     Route: 058
     Dates: start: 20050425, end: 20050526

REACTIONS (1)
  - HAEMOLYTIC ANAEMIA [None]
